FAERS Safety Report 7349887-3 (Version None)
Quarter: 2011Q1

REPORT INFORMATION
  Report Type: 
  Country: None (occurrence: None)
  Receive Date: 20110222
  Receipt Date: 20100610
  Transmission Date: 20110831
  Serious: Yes (Other)
  Sender: FDA-Public Use
  Company Number: WAES 1006USA01704

PATIENT
  Age: 41 Year
  Sex: Male

DRUGS (1)
  1. ZOCOR [Suspect]
     Indication: BLOOD CHOLESTEROL INCREASED
     Dosage: 20 MG/PO
     Route: 048
     Dates: start: 20100426

REACTIONS (2)
  - TENDONITIS [None]
  - RHABDOMYOLYSIS [None]
